FAERS Safety Report 15309728 (Version 1)
Quarter: 2018Q3

REPORT INFORMATION
  Report Type: Spontaneous
  Country: US (occurrence: US)
  Receive Date: 20180813
  Receipt Date: 20180813
  Transmission Date: 20181010
  Serious: Yes (Death)
  Sender: FDA-Public Use
  Company Number: None

PATIENT
  Age: 73 Year
  Sex: Male

DRUGS (1)
  1. AVONEX [Suspect]
     Active Substance: INTERFERON BETA-1A
     Indication: MULTIPLE SCLEROSIS
     Dosage: 30MCG/.5M WEEKLY INTRAMUSCULARLY
     Route: 030
     Dates: start: 20140514, end: 20180627

REACTIONS (2)
  - Lung carcinoma cell type unspecified stage IV [None]
  - Death [None]

NARRATIVE: CASE EVENT DATE: 20180627
